FAERS Safety Report 16452578 (Version 1)
Quarter: 2019Q2

REPORT INFORMATION
  Report Type: Spontaneous
  Country: US (occurrence: US)
  Receive Date: 20190619
  Receipt Date: 20190619
  Transmission Date: 20190711
  Serious: No
  Sender: FDA-Public Use
  Company Number: US-ACTELION-A-US2019-191328

PATIENT
  Age: 38 Year
  Sex: Female

DRUGS (1)
  1. OPSUMIT [Suspect]
     Active Substance: MACITENTAN
     Indication: PULMONARY ARTERIAL HYPERTENSION
     Dosage: 10 MG, QD
     Route: 048
     Dates: start: 201509

REACTIONS (3)
  - Paraesthesia [Not Recovered/Not Resolved]
  - Complication associated with device [Not Recovered/Not Resolved]
  - Catheter site haemorrhage [Not Recovered/Not Resolved]

NARRATIVE: CASE EVENT DATE: 20190522
